FAERS Safety Report 15456130 (Version 1)
Quarter: 2018Q4

REPORT INFORMATION
  Report Type: Spontaneous
  Country: US (occurrence: US)
  Receive Date: 20181002
  Receipt Date: 20181002
  Transmission Date: 20190204
  Serious: No
  Sender: FDA-Public Use
  Company Number: US-SA-2018SA267579

PATIENT
  Sex: Male

DRUGS (2)
  1. TOUJEO [Suspect]
     Active Substance: INSULIN GLARGINE
     Dosage: 120 IU, QD
  2. LANTUS [Suspect]
     Active Substance: INSULIN GLARGINE
     Dosage: 60 UNITS IN THE AM AND 45 UNITS AT NIGHT

REACTIONS (4)
  - Blood glucose increased [Unknown]
  - Feeling hot [Unknown]
  - Drug ineffective [Unknown]
  - Peripheral swelling [Unknown]
